FAERS Safety Report 23325304 (Version 5)
Quarter: 2024Q2

REPORT INFORMATION
  Report Type: Spontaneous
  Country: JP (occurrence: JP)
  Receive Date: 20231221
  Receipt Date: 20240624
  Transmission Date: 20240716
  Serious: Yes (Death, Life-Threatening, Other)
  Sender: FDA-Public Use
  Company Number: JP-ASTELLAS-2023JP010397

PATIENT
  Age: 78 Year
  Sex: Male
  Weight: 65.5 kg

DRUGS (4)
  1. PADCEV [Suspect]
     Active Substance: ENFORTUMAB VEDOTIN-EJFV
     Indication: Malignant neoplasm of renal pelvis
     Dosage: 81 MG, ONE TIME/WEEK, 3 DOSES AND 1 REST
     Route: 041
     Dates: start: 20230824, end: 20230831
  2. KEYTRUDA [Suspect]
     Active Substance: PEMBROLIZUMAB
     Indication: Malignant neoplasm of renal pelvis
     Dosage: 200MG/DOSE, ONCE/3 WEEKS
     Route: 041
     Dates: start: 20230131, end: 20230718
  3. FILGRASTIM RECOMBINANT [Concomitant]
     Indication: Neutrophil count decreased
     Route: 058
     Dates: start: 20230906, end: 20230920
  4. CEFEPIME [Concomitant]
     Active Substance: CEFEPIME HYDROCHLORIDE
     Indication: Neutrophil count decreased
     Route: 041
     Dates: start: 20230906, end: 20230920

REACTIONS (4)
  - Pemphigoid [Fatal]
  - Hepatic failure [Not Recovered/Not Resolved]
  - Myelosuppression [Not Recovered/Not Resolved]
  - Toxic epidermal necrolysis [Fatal]

NARRATIVE: CASE EVENT DATE: 20230904
